FAERS Safety Report 6056606-X (Version None)
Quarter: 2009Q1

REPORT INFORMATION
  Report Type: 
  Country: None (occurrence: None)
  Receive Date: 20090126
  Receipt Date: 20090126
  Transmission Date: 20090719
  Serious: No
  Sender: FDA-Public Use
  Company Number: None

PATIENT
  Sex: Male

DRUGS (1)
  1. AMIFOSTINE [Suspect]
     Dosage: 500MG M-F X 8 WEEKS SQ 6 DOSES SINCE 1/8/09
     Route: 058
     Dates: start: 20090108

REACTIONS (1)
  - RASH MACULO-PAPULAR [None]
